FAERS Safety Report 19176099 (Version 1)
Quarter: 2021Q2

REPORT INFORMATION
  Report Type: Spontaneous
  Country: FR (occurrence: FR)
  Receive Date: 20210423
  Receipt Date: 20210423
  Transmission Date: 20210717
  Serious: Yes (Other)
  Sender: FDA-Public Use
  Company Number: FR-ORGANON-2101FRA011635

PATIENT
  Age: 33 Year
  Sex: Female

DRUGS (1)
  1. NEXPLANON [Suspect]
     Active Substance: ETONOGESTREL
     Dosage: 1 IMPLANT
     Dates: start: 20200830, end: 202102

REACTIONS (6)
  - Device deployment issue [Recovered/Resolved]
  - Device issue [Recovered/Resolved]
  - Maternal exposure during breast feeding [Unknown]
  - Complication of device removal [Recovered/Resolved]
  - Heavy menstrual bleeding [Unknown]
  - Inappropriate schedule of product administration [Unknown]

NARRATIVE: CASE EVENT DATE: 2020
